FAERS Safety Report 5407794-7 (Version None)
Quarter: 2007Q3

REPORT INFORMATION
  Report Type: 
  Country: None (occurrence: None)
  Receive Date: 20070713
  Receipt Date: 20070503
  Transmission Date: 20080115
  Serious: No
  Sender: FDA-Public Use
  Company Number: 2007SP001662

PATIENT
  Age: 47 Year
  Sex: Female

DRUGS (3)
  1. LUNESTA [Suspect]
     Indication: INSOMNIA
     Dosage: 3 MG;ORAL
     Route: 048
  2. LEVOXYL [Concomitant]
  3. CLONAZEPAM [Concomitant]

REACTIONS (1)
  - PARADOXICAL DRUG REACTION [None]
